FAERS Safety Report 9252503 (Version 2)
Quarter: 2013Q2

REPORT INFORMATION
  Report Type: Spontaneous
  Country: NO (occurrence: NO)
  Receive Date: 20130424
  Receipt Date: 20130501
  Transmission Date: 20140414
  Serious: Yes (Death, Other)
  Sender: FDA-Public Use
  Company Number: NO-TEVA-399189ISR

PATIENT
  Age: 27 Year
  Sex: Male
  Weight: 144 kg

DRUGS (4)
  1. METHOTREXATE [Suspect]
     Indication: PSORIATIC ARTHROPATHY
     Dosage: 15MG, WEEKLY (6 TABLETS ONCE WEEKLY)
     Route: 048
     Dates: start: 201101, end: 201104
  2. BRUFEN RETARD [Concomitant]
     Indication: PSORIATIC ARTHROPATHY
     Dosage: 1-2 TABLETS EVENING WHEN NEEDED
     Route: 048
  3. FOLSYRE NAF [Concomitant]
     Indication: PSORIATIC ARTHROPATHY
     Route: 048
     Dates: start: 201101
  4. PARACETAMOL [Concomitant]
     Indication: PSORIATIC ARTHROPATHY

REACTIONS (3)
  - Congestive cardiomyopathy [Fatal]
  - Pyrexia [Unknown]
  - General physical health deterioration [Unknown]
